FAERS Safety Report 5428032-5 (Version None)
Quarter: 2007Q3

REPORT INFORMATION
  Report Type: 
  Country: None (occurrence: None)
  Receive Date: 20070731
  Receipt Date: 20070521
  Transmission Date: 20080115
  Serious: No
  Sender: FDA-Public Use
  Company Number: US200705005425

PATIENT
  Sex: Female

DRUGS (2)
  1. BYETTA [Suspect]
     Dosage: SUBCUTANEOUS
     Route: 058
     Dates: start: 20070101, end: 20070101
  2. EXENATIDE (EXENATIDE) [Concomitant]

REACTIONS (2)
  - BREAST SWELLING [None]
  - BREAST TENDERNESS [None]
